FAERS Safety Report 9717475 (Version 1)
Quarter: 2013Q4

REPORT INFORMATION
  Report Type: Spontaneous
  Country: US (occurrence: US)
  Receive Date: 20131127
  Receipt Date: 20131127
  Transmission Date: 20140711
  Serious: No
  Sender: FDA-Public Use
  Company Number: US-GILEAD-2009-0019737

PATIENT
  Sex: Male

DRUGS (8)
  1. LETAIRIS [Suspect]
     Indication: PULMONARY ARTERIAL HYPERTENSION
     Route: 048
     Dates: start: 20080813
  2. VERAPAMIL [Concomitant]
  3. DIOVAN [Concomitant]
  4. FLOMAX [Concomitant]
  5. BENZONATATE [Concomitant]
  6. PREDNISONE [Concomitant]
  7. OMEPRAZOLE [Concomitant]
  8. CENTRUM [Concomitant]

REACTIONS (2)
  - Oxygen saturation decreased [Not Recovered/Not Resolved]
  - Constipation [Not Recovered/Not Resolved]
